FAERS Safety Report 5765021-5 (Version None)
Quarter: 2008Q2

REPORT INFORMATION
  Report Type: 
  Country: None (occurrence: None)
  Receive Date: 20080611
  Receipt Date: 20080604
  Transmission Date: 20081010
  Serious: Yes (Other)
  Sender: FDA-Public Use
  Company Number: IN-BRISTOL-MYERS SQUIBB COMPANY-14217582

PATIENT
  Age: 72 Year
  Sex: Male

DRUGS (6)
  1. BLINDED: APIXABAN [Suspect]
     Indication: THROMBOSIS PROPHYLAXIS
     Dosage: APIXABAN/PLACEBO 2 TABS BOTTLE # 184855
     Route: 048
     Dates: start: 20070913
  2. WARFARIN SODIUM [Suspect]
     Indication: THROMBOSIS PROPHYLAXIS
     Route: 048
     Dates: start: 20070913
  3. BLINDED: PLACEBO [Suspect]
     Indication: THROMBOSIS PROPHYLAXIS
     Dosage: APIXABAN/PLACEBO 2 TABS BOTTLE # 184855
     Route: 048
     Dates: start: 20070913
  4. DIGOXIN [Concomitant]
     Dates: start: 20030207
  5. FUROSEMIDE [Concomitant]
     Dates: start: 20030201
  6. ALDOSTIX [Concomitant]
     Dates: start: 20030207

REACTIONS (1)
  - ACCIDENTAL OVERDOSE [None]
